FAERS Safety Report 10141445 (Version 2)
Quarter: 2014Q2

REPORT INFORMATION
  Report Type: Spontaneous
  Country: CN (occurrence: CN)
  Receive Date: 20140429
  Receipt Date: 20140523
  Transmission Date: 20141212
  Serious: Yes (Hospitalization, Other)
  Sender: FDA-Public Use
  Company Number: CN-JNJFOC-20140413344

PATIENT
  Age: 1 Year
  Sex: Male
  Weight: 10 kg

DRUGS (6)
  1. TYLENOL [Suspect]
     Route: 048
  2. TYLENOL [Suspect]
     Indication: PYREXIA
     Route: 048
     Dates: start: 20130117, end: 20130117
  3. XIAO ER AN FEN HUANG NA MIN KE LI [Suspect]
     Indication: UPPER RESPIRATORY TRACT INFECTION
     Route: 048
     Dates: start: 20130108, end: 20130117
  4. PHENOBARBITONE [Suspect]
     Indication: CONVULSION
     Route: 048
     Dates: start: 20130117, end: 20130117
  5. HERBAL PREPARATION [Concomitant]
     Indication: UPPER RESPIRATORY TRACT INFECTION
     Route: 048
     Dates: start: 20130108, end: 20130117
  6. ACETYLCYSTEINE [Concomitant]
     Indication: UPPER RESPIRATORY TRACT INFECTION
     Route: 065
     Dates: start: 20130108, end: 20130117

REACTIONS (2)
  - Convulsion [Unknown]
  - Hepatic enzyme increased [Recovered/Resolved]
